FAERS Safety Report 14652757 (Version 1)
Quarter: 2018Q1

REPORT INFORMATION
  Report Type: Spontaneous
  Country: US (occurrence: US)
  Receive Date: 20180319
  Receipt Date: 20180319
  Transmission Date: 20180509
  Serious: Yes (Death, Hospitalization, Other)
  Sender: FDA-Public Use
  Company Number: US-009507513-1803USA005668

PATIENT
  Age: 61 Year
  Sex: Male

DRUGS (1)
  1. KEYTRUDA [Suspect]
     Active Substance: PEMBROLIZUMAB
     Indication: OESOPHAGEAL CARCINOMA
     Dosage: UNK
     Route: 042
     Dates: start: 20171215, end: 20171215

REACTIONS (11)
  - Gastrointestinal motility disorder [Not Recovered/Not Resolved]
  - Death [Fatal]
  - Pneumonia [Unknown]
  - Product use in unapproved indication [Unknown]
  - Dehydration [Not Recovered/Not Resolved]
  - Hepatic enzyme increased [Unknown]
  - Stent placement [Unknown]
  - Asthenia [Not Recovered/Not Resolved]
  - Decreased appetite [Not Recovered/Not Resolved]
  - Weight decreased [Unknown]
  - Gastrointestinal tube insertion [Unknown]

NARRATIVE: CASE EVENT DATE: 201712
